FAERS Safety Report 8978028 (Version 1)
Quarter: 2012Q4

REPORT INFORMATION
  Report Type: 
  Country: DE (occurrence: DE)
  Receive Date: 20121220
  Receipt Date: 20121220
  Transmission Date: 20130627
  Serious: Yes (Disabling)
  Sender: FDA-Public Use
  Company Number: DE-ASTRAZENECA-2012SE93769

PATIENT
  Age: 582 Month
  Sex: Female

DRUGS (7)
  1. NAROPIN [Suspect]
     Indication: ANAESTHESIA
     Dosage: N. FEMORALIS CATHETER 40 ML
     Route: 053
     Dates: start: 20100211
  2. NAROPIN [Suspect]
     Indication: ANAESTHESIA
     Dosage: N. ISCHIADICUS CATHETER 40 ML
     Route: 053
     Dates: start: 20100211
  3. NAROPIN [Suspect]
     Indication: ANAESTHESIA
     Dosage: N. FEMORALIS CATHETER 6 ML/H
     Route: 053
     Dates: start: 20100211
  4. NAROPIN [Suspect]
     Indication: ANAESTHESIA
     Dosage: N. ISCHIADICUS CATHETER 6 ML/H
     Route: 053
     Dates: start: 20100211
  5. NAROPIN [Suspect]
     Indication: ANAESTHESIA
     Dosage: GENERAL ANAESTHESIA WITH ^2/12^ ROPIVACAINE
     Route: 042
     Dates: start: 20100211
  6. NAROPIN [Suspect]
     Indication: ANAESTHESIA
     Dosage: TWICE PERFUSOR 4 MG NAROPIN 2X2 MG
     Route: 042
     Dates: start: 20100211
  7. NAROPIN [Suspect]
     Indication: ANAESTHESIA
     Dosage: 2X2 MG PERFUSOR (5 ML/H)
     Route: 042
     Dates: start: 20100212

REACTIONS (1)
  - Nerve injury [Not Recovered/Not Resolved]
